FAERS Safety Report 7193765-X (Version None)
Quarter: 2010Q4

REPORT INFORMATION
  Report Type: 
  Country: None (occurrence: None)
  Receive Date: 20101223
  Receipt Date: 20100910
  Transmission Date: 20110411
  Serious: No
  Sender: FDA-Public Use
  Company Number: US-AMGEN-KDL437647

PATIENT

DRUGS (2)
  1. ENBREL [Suspect]
     Indication: PSORIASIS
     Dosage: 50 MG, QWK
     Route: 058
     Dates: start: 20060506, end: 20100701
  2. ENBREL [Suspect]
     Dosage: UNK UNK, UNK
     Dates: start: 20100801

REACTIONS (3)
  - DERMATITIS CONTACT [None]
  - HAND-FOOT-AND-MOUTH DISEASE [None]
  - PSORIASIS [None]
